FAERS Safety Report 20119654 (Version 3)
Quarter: 2022Q1

REPORT INFORMATION
  Report Type: Spontaneous
  Country: US (occurrence: US)
  Receive Date: 20211126
  Receipt Date: 20220217
  Transmission Date: 20220424
  Serious: No
  Sender: FDA-Public Use
  Company Number: US-KYOWAKIRIN-2021BKK019649

PATIENT

DRUGS (3)
  1. NOURIANZ [Suspect]
     Active Substance: ISTRADEFYLLINE
     Indication: Parkinson^s disease
     Dosage: 40 MG, ONCE DAILY
     Route: 048
     Dates: start: 20210814
  2. COVID-19 VACCINE NOS [Suspect]
     Active Substance: COVID-19 VACCINE NOS
     Indication: Product used for unknown indication
     Dosage: BOOSTER SHOT
     Route: 065
     Dates: start: 2021
  3. VARICELLA-ZOSTER VIRUS STRAIN OKA/MERCK LIVE ANTIGEN [Suspect]
     Active Substance: VARICELLA-ZOSTER VIRUS STRAIN OKA/MERCK LIVE ANTIGEN
     Indication: Product used for unknown indication
     Dosage: SECOND SHOT
     Route: 065
     Dates: start: 2021

REACTIONS (5)
  - Pain [Unknown]
  - Abdominal pain upper [Unknown]
  - Constipation [Unknown]
  - Therapy partial responder [Unknown]
  - Medication error [Unknown]

NARRATIVE: CASE EVENT DATE: 20210101
